FAERS Safety Report 7053367-2 (Version None)
Quarter: 2010Q4

REPORT INFORMATION
  Report Type: 
  Country: None (occurrence: None)
  Receive Date: 20101020
  Receipt Date: 20101013
  Transmission Date: 20110411
  Serious: Yes (Other)
  Sender: FDA-Public Use
  Company Number: US-SANOFI-AVENTIS-2010SA063003

PATIENT
  Age: 80 Year
  Sex: Female

DRUGS (3)
  1. MULTAQ [Suspect]
     Route: 048
     Dates: start: 20090101
  2. BECONASE [Suspect]
     Route: 065
     Dates: start: 20100901
  3. BENADRYL [Suspect]
     Route: 065
     Dates: start: 20100101

REACTIONS (4)
  - ATRIAL FIBRILLATION [None]
  - HYPERSENSITIVITY [None]
  - NASAL CONGESTION [None]
  - RHINORRHOEA [None]
